FAERS Safety Report 6532815-8 (Version None)
Quarter: 2010Q1

REPORT INFORMATION
  Report Type: 
  Country: None (occurrence: None)
  Receive Date: 20100105
  Receipt Date: 20091028
  Transmission Date: 20100710
  Serious: Yes (Congenital Anomaly)
  Sender: FDA-Public Use
  Company Number: LIT-09-0027-W-6/9

PATIENT

DRUGS (1)
  1. SERTRALINE HCL [Suspect]
     Dosage: 047

REACTIONS (2)
  - CARDIAC SEPTAL DEFECT [None]
  - MATERNAL DRUGS AFFECTING FOETUS [None]
